FAERS Safety Report 17864633 (Version 2)
Quarter: 2020Q2

REPORT INFORMATION
  Report Type: Report from Study
  Country: CA (occurrence: CA)
  Receive Date: 20200605
  Receipt Date: 20200626
  Transmission Date: 20200714
  Serious: Yes (Hospitalization)
  Sender: FDA-Public Use
  Company Number: CA-HLS-202000677

PATIENT
  Age: 40 Year
  Sex: Male

DRUGS (10)
  1. ZOLOFT [Concomitant]
     Active Substance: SERTRALINE HYDROCHLORIDE
     Dosage: 50MG Q AM
     Route: 048
  2. CLOZARIL [Suspect]
     Active Substance: CLOZAPINE
     Indication: PRODUCT USED FOR UNKNOWN INDICATION
     Dosage: 325MG AT BEDTIME
     Route: 048
     Dates: end: 20200420
  3. ATENOLOL. [Concomitant]
     Active Substance: ATENOLOL
     Dosage: 250MG Q AM
     Route: 048
  4. CANDESARTAN. [Concomitant]
     Active Substance: CANDESARTAN
     Dosage: 8MG Q AM
     Route: 048
  5. CLOZARIL [Suspect]
     Active Substance: CLOZAPINE
     Indication: PRODUCT USED FOR UNKNOWN INDICATION
     Dosage: 200MG AT BEDTIME
     Route: 048
     Dates: start: 20200515
  6. DIVALPROEX [Concomitant]
     Active Substance: DIVALPROEX SODIUM
     Dosage: 500MG BID
     Route: 048
     Dates: start: 20180925
  7. TRAJENTA [Concomitant]
     Active Substance: LINAGLIPTIN
     Dosage: 5MG Q AM
     Route: 048
     Dates: start: 20200401
  8. INVEGA SUSTENNA [Concomitant]
     Active Substance: PALIPERIDONE PALMITATE
     Dosage: 150MG Q 4 WEEKS
     Route: 030
     Dates: start: 20200421
  9. TRIHEXYPHENIDYL [Concomitant]
     Active Substance: TRIHEXYPHENIDYL
     Dosage: 5MG TID
     Route: 048
  10. SERTRALINE [Concomitant]
     Active Substance: SERTRALINE HYDROCHLORIDE
     Dosage: 50MG Q AM
     Route: 048

REACTIONS (2)
  - Treatment noncompliance [Recovered/Resolved]
  - Psychotic disorder [Unknown]
